FAERS Safety Report 5091272-1 (Version None)
Quarter: 2006Q3

REPORT INFORMATION
  Report Type: 
  Country: None (occurrence: None)
  Receive Date: 20060829
  Receipt Date: 20060823
  Transmission Date: 20061208
  Serious: Yes (Other)
  Sender: FDA-Public Use
  Company Number: US-JNJFOC-20060805589

PATIENT
  Age: 47 Year
  Sex: Male

DRUGS (5)
  1. REMICADE [Suspect]
     Indication: RHEUMATOID ARTHRITIS
  2. LATANOPROST [Concomitant]
     Indication: GLAUCOMA
  3. CARTEOLOL HCL [Concomitant]
     Indication: GLAUCOMA
  4. HYDROXYCHLOROQUINE SULFATE [Concomitant]
  5. METHOTREXATE [Concomitant]

REACTIONS (1)
  - IIIRD NERVE PARALYSIS [None]
